FAERS Safety Report 8471284 (Version 4)
Quarter: 2013Q2

REPORT INFORMATION
  Report Type: Spontaneous
  Country: CA (occurrence: CA)
  Receive Date: 20120322
  Receipt Date: 20130426
  Transmission Date: 20140414
  Serious: Yes (Other)
  Sender: FDA-Public Use
  Company Number: CA-JNJFOC-20120307124

PATIENT
  Age: 54 Year
  Sex: Male
  Weight: 82.1 kg

DRUGS (6)
  1. REMICADE [Suspect]
     Indication: COLITIS ULCERATIVE
     Route: 042
     Dates: start: 201107, end: 201112
  2. SULFASALAZINE [Concomitant]
  3. PREDNISONE [Concomitant]
  4. IMURAN [Concomitant]
     Indication: COLITIS ULCERATIVE
     Route: 065
     Dates: start: 2012
  5. IMURAN [Concomitant]
     Indication: COLITIS ULCERATIVE
     Dosage: DAILY DOSE: 150??RESTARTED 1 WEEK LATER
     Route: 065
     Dates: start: 200906, end: 201201
  6. SOLUCORTEF [Concomitant]

REACTIONS (1)
  - Herpes zoster [Recovered/Resolved]
